FAERS Safety Report 6189324-8 (Version None)
Quarter: 2009Q2

REPORT INFORMATION
  Report Type: 
  Country: None (occurrence: None)
  Receive Date: 20090513
  Receipt Date: 20090428
  Transmission Date: 20091009
  Serious: Yes (Hospitalization)
  Sender: FDA-Public Use
  Company Number: AU-GENENTECH-228632

PATIENT
  Sex: Female

DRUGS (6)
  1. XOLAIR [Suspect]
     Indication: ASTHMA
     Dosage: 150 MG, SINGLE
     Dates: start: 20060718, end: 20060718
  2. XOLAIR [Suspect]
     Dosage: 300 MG, SINGLE
     Dates: start: 20060801, end: 20060801
  3. SALBUTAMOL SULFATE [Concomitant]
     Indication: DRUG USE FOR UNKNOWN INDICATION
     Dosage: UNK MG, UNK
  4. SYMBICORT [Concomitant]
     Indication: DRUG USE FOR UNKNOWN INDICATION
  5. RHINOCORT [Concomitant]
     Indication: DRUG USE FOR UNKNOWN INDICATION
  6. CONTINUOUS POSITIVE AIRWAY PRESSURE [Concomitant]
     Indication: DRUG USE FOR UNKNOWN INDICATION

REACTIONS (7)
  - ALTERED STATE OF CONSCIOUSNESS [None]
  - HYPERTENSION [None]
  - HYPOTENSION [None]
  - MALAISE [None]
  - NAUSEA [None]
  - SYNCOPE [None]
  - TACHYCARDIA [None]
